FAERS Safety Report 9759661 (Version 1)
Quarter: 2013Q4

REPORT INFORMATION
  Report Type: Spontaneous
  Country: US (occurrence: US)
  Receive Date: 20131216
  Receipt Date: 20131216
  Transmission Date: 20140711
  Serious: No
  Sender: FDA-Public Use
  Company Number: US-GILEAD-2010-0028590

PATIENT
  Age: 68 Year
  Sex: Male

DRUGS (9)
  1. LETAIRIS [Suspect]
     Indication: PULMONARY ARTERIAL HYPERTENSION
     Route: 048
     Dates: start: 20100305, end: 20100404
  2. COMBIVENT [Concomitant]
  3. NITROGLYCERIN [Concomitant]
  4. ISOSORBIDE MONONITRATE [Concomitant]
  5. OMEPRAZOLE [Concomitant]
  6. ASPIRIN [Concomitant]
  7. SPIRONOLACTONE [Concomitant]
  8. PLAVIX [Concomitant]
  9. FUROSEMIDE [Concomitant]

REACTIONS (2)
  - Fluid retention [Recovering/Resolving]
  - Dyspnoea [Recovering/Resolving]
